FAERS Safety Report 17037293 (Version 6)
Quarter: 2020Q3

REPORT INFORMATION
  Report Type: Spontaneous
  Country: US (occurrence: US)
  Receive Date: 20191115
  Receipt Date: 20200925
  Transmission Date: 20201102
  Serious: No
  Sender: FDA-Public Use
  Company Number: US-PFIZER INC-2018508361

PATIENT
  Age: 7 Year
  Sex: Female
  Weight: 26.76 kg

DRUGS (3)
  1. XELJANZ [Suspect]
     Active Substance: TOFACITINIB CITRATE
     Indication: ALOPECIA AREATA
     Dosage: 5 MG
  2. XELJANZ [Suspect]
     Active Substance: TOFACITINIB CITRATE
     Indication: ALOPECIA
     Dosage: 5 MG, 2X/DAY
     Route: 048
     Dates: start: 201804, end: 2019
  3. XELJANZ [Suspect]
     Active Substance: TOFACITINIB CITRATE
     Indication: ALOPECIA UNIVERSALIS
     Dosage: UNK
     Dates: start: 20200915

REACTIONS (5)
  - Drug effective for unapproved indication [Unknown]
  - Off label use [Unknown]
  - Product use in unapproved indication [Unknown]
  - Pain [Unknown]
  - Product use issue [Unknown]

NARRATIVE: CASE EVENT DATE: 201804
